FAERS Safety Report 12528132 (Version 1)
Quarter: 2016Q3

REPORT INFORMATION
  Report Type: Spontaneous
  Country: FR (occurrence: FR)
  Receive Date: 20160705
  Receipt Date: 20160705
  Transmission Date: 20161109
  Serious: Yes (Hospitalization, Other)
  Sender: FDA-Public Use
  Company Number: FR-PFIZER INC-2016321525

PATIENT
  Age: 20 Year
  Sex: Female

DRUGS (3)
  1. XANAX [Suspect]
     Active Substance: ALPRAZOLAM
     Dosage: 6 TABLETS OF ALPRAZOLAM 0.5 MG
     Route: 048
     Dates: start: 20160617, end: 20160618
  2. LEXOMIL ROCHE COMPRIME BAGUETTE [Suspect]
     Active Substance: BROMAZEPAM
     Dosage: 6 TABLETS OF LEXOMIL ROCHE COMPRIME BAGUETTE
     Route: 048
     Dates: start: 20160617, end: 20160618
  3. ZOLPIDEM [Suspect]
     Active Substance: ZOLPIDEM\ZOLPIDEM TARTRATE
     Dosage: 6 TABLETS OF ZOLPIDEM
     Route: 048
     Dates: start: 20160617, end: 20160618

REACTIONS (2)
  - Asthenia [Unknown]
  - Poisoning deliberate [Unknown]

NARRATIVE: CASE EVENT DATE: 201606
